FAERS Safety Report 24738880 (Version 1)
Quarter: 2024Q4

REPORT INFORMATION
  Report Type: Spontaneous
  Country: US (occurrence: US)
  Receive Date: 20241216
  Receipt Date: 20241216
  Transmission Date: 20250115
  Serious: No
  Sender: ALVOGEN
  Company Number: US-ALVOGEN-2024093277

PATIENT
  Sex: Female

DRUGS (3)
  1. FENTANYL [Suspect]
     Active Substance: FENTANYL
     Indication: Cancer pain
     Dosage: FIRST BOX
     Route: 062
  2. FENTANYL [Suspect]
     Active Substance: FENTANYL
     Indication: Cancer pain
     Dosage: SECOND BOX
     Route: 062
  3. FENTANYL [Suspect]
     Active Substance: FENTANYL
     Indication: Cancer pain
     Dosage: EXP. DATE: UU-JULY-2026; THIRD BOX?12 MCG/HR
     Route: 062

REACTIONS (5)
  - Device malfunction [Unknown]
  - Device adhesion issue [Unknown]
  - Product packaging quantity issue [Unknown]
  - Product packaging issue [Unknown]
  - Wrong technique in device usage process [Unknown]
